FAERS Safety Report 8189617-9 (Version None)
Quarter: 2012Q1

REPORT INFORMATION
  Report Type: 
  Country: None (occurrence: None)
  Receive Date: 20120221
  Receipt Date: 20120110
  Transmission Date: 20120608
  Serious: No
  Sender: FDA-Public Use
  Company Number: 049400

PATIENT
  Sex: Female
  Weight: 72.5 kg

DRUGS (7)
  1. DILANTIN /00017401/ ( TO CONTINUING) [Concomitant]
  2. VITAMIN B12 /00056201/ ( TO CONTINUING) [Concomitant]
  3. ZONISAMIDE ( TO CONTINUING) [Concomitant]
  4. ASPIRIN /00002701/ ( TO CONTINUING) [Concomitant]
  5. MULTIVITAMIN /00831701/ ( TO CONTINUING) [Concomitant]
  6. LACOSAMIDE [Suspect]
     Indication: CONVULSION
     Dosage: SEE IMAGE
     Route: 048
     Dates: start: 20120104
  7. CALCIUM ( TO CONTINUING) [Concomitant]

REACTIONS (8)
  - IRRITABILITY [None]
  - ABASIA [None]
  - ORAL DISCOMFORT [None]
  - DRY MOUTH [None]
  - CONVULSION [None]
  - DYSSTASIA [None]
  - GLOSSODYNIA [None]
  - FATIGUE [None]
